FAERS Safety Report 5505951-2 (Version None)
Quarter: 2007Q4

REPORT INFORMATION
  Report Type: 
  Country: None (occurrence: None)
  Receive Date: 20071102
  Receipt Date: 20071102
  Transmission Date: 20080405
  Serious: Yes (Hospitalization)
  Sender: FDA-Public Use
  Company Number: None

PATIENT
  Sex: Male
  Weight: 80.9 kg

DRUGS (7)
  1. ERBITUX [Suspect]
     Dosage: 9441 MG
  2. AMBIEN [Concomitant]
  3. ASPIRIN [Concomitant]
  4. IBUPROFEN [Concomitant]
  5. MINOCYCLINE HCL [Concomitant]
  6. MORPHINE SULFATE CONTIN [Concomitant]
  7. VICODIN [Concomitant]

REACTIONS (2)
  - PLEURAL EFFUSION [None]
  - PULMONARY EMBOLISM [None]
